FAERS Safety Report 8010098-X (Version None)
Quarter: 2011Q4

REPORT INFORMATION
  Report Type: 
  Country: None (occurrence: None)
  Receive Date: 20111228
  Receipt Date: 20111219
  Transmission Date: 20120403
  Serious: Yes (Hospitalization, Other)
  Sender: FDA-Public Use
  Company Number: CA-BRISTOL-MYERS SQUIBB COMPANY-15428055

PATIENT
  Age: 48 Year
  Sex: Female

DRUGS (23)
  1. ESTROGEL [Concomitant]
  2. HYDROMORPHONE HCL [Concomitant]
  3. FORTEO [Concomitant]
     Dosage: DISCONTINUED
     Dates: end: 20110501
  4. ALBUTEROL SULFATE AUTOHALER [Concomitant]
  5. SULFASALAZINE [Concomitant]
     Dosage: DOSSE INCREASED FROM 2 TABS TO 4 TABS
  6. DOXEPIN [Concomitant]
  7. EPIPEN [Concomitant]
  8. SCOPOLAMINE [Concomitant]
  9. PULMICORT [Concomitant]
  10. ORENCIA [Suspect]
     Indication: RHEUMATOID ARTHRITIS
     Dosage: INF:10,27JAN11,23MA1:LOTOK64668/EXP:JUL13,OCT13.LASTINF23AP,25MA,17JUN,14OC11,JL2013,22NOV2011.
     Route: 042
     Dates: start: 20101203
  11. COZAAR [Concomitant]
  12. FOLIC ACID [Concomitant]
  13. TOPAMAX [Concomitant]
  14. CALCIUM CARBONATE [Concomitant]
  15. MS CONTIN [Concomitant]
  16. METHOTREXATE [Concomitant]
  17. METOCLOPRAMIDE [Concomitant]
  18. PROMETRIUM [Concomitant]
  19. PAXIL [Concomitant]
  20. PREDNISONE TAB [Concomitant]
     Route: 048
  21. WARFARIN SODIUM [Suspect]
     Dosage: DOSES CHANGING DAILY.
  22. PRILOSEC [Concomitant]
     Dosage: STOPPED
  23. PREDNISONE TAB [Concomitant]

REACTIONS (22)
  - GENERALISED OEDEMA [None]
  - PULMONARY THROMBOSIS [None]
  - PRODUCTIVE COUGH [None]
  - DIZZINESS [None]
  - C-REACTIVE PROTEIN INCREASED [None]
  - PNEUMONIA [None]
  - DYSPNOEA [None]
  - PULMONARY OEDEMA [None]
  - PYREXIA [None]
  - DEEP VEIN THROMBOSIS [None]
  - PNEUMONIA ASPIRATION [None]
  - TACHYCARDIA [None]
  - BLOOD PRESSURE INCREASED [None]
  - RED BLOOD CELL SEDIMENTATION RATE INCREASED [None]
  - BLOOD IRON DECREASED [None]
  - HAEMOGLOBIN DECREASED [None]
  - CLOSTRIDIAL INFECTION [None]
  - MUSCLE SPASMS [None]
  - HEADACHE [None]
  - FATIGUE [None]
  - COLITIS ULCERATIVE [None]
  - INTERNATIONAL NORMALISED RATIO ABNORMAL [None]
